FAERS Safety Report 5209776-7 (Version None)
Quarter: 2006Q4

REPORT INFORMATION
  Report Type: 
  Country: None (occurrence: None)
  Receive Date: 20061129
  Receipt Date: 20041020
  Transmission Date: 20070319
  Serious: No
  Sender: FDA-Public Use
  Company Number: 2004UW21691

PATIENT
  Age: 66 Year
  Sex: Male

DRUGS (3)
  1. LISINOPRIL [Suspect]
     Indication: HYPERTENSION
     Dosage: 20 MG DAILY PO
     Route: 048
  2. LISINOPRIL [Suspect]
     Indication: HYPERTENSION
     Dosage: 80 MG DAILY PO
     Route: 048
  3. GLIPIZIDE [Concomitant]

REACTIONS (2)
  - OVERDOSE [None]
  - RENAL FAILURE ACUTE [None]
